FAERS Safety Report 7293708-4 (Version None)
Quarter: 2011Q1

REPORT INFORMATION
  Report Type: 
  Country: None (occurrence: None)
  Receive Date: 20110215
  Receipt Date: 20110207
  Transmission Date: 20110831
  Serious: Yes (Hospitalization)
  Sender: FDA-Public Use
  Company Number: B0699734A

PATIENT
  Sex: Male

DRUGS (1)
  1. AUGMENTIN '125' [Suspect]
     Dates: start: 20110201, end: 20110202

REACTIONS (6)
  - LIP OEDEMA [None]
  - BRONCHOSPASM [None]
  - ANGIOEDEMA [None]
  - FACE OEDEMA [None]
  - EYELID OEDEMA [None]
  - URTICARIA [None]
